FAERS Safety Report 4886101-2 (Version None)
Quarter: 2006Q1

REPORT INFORMATION
  Report Type: 
  Country: None (occurrence: None)
  Receive Date: 20060118
  Receipt Date: 20060118
  Transmission Date: 20060701
  Serious: Yes (Hospitalization)
  Sender: FDA-Public Use
  Company Number: None

PATIENT
  Age: 28 Year
  Sex: Male

DRUGS (5)
  1. ABILIFY [Suspect]
     Indication: PSYCHOTIC DISORDER
     Dosage: 20MG BID PO
     Route: 048
     Dates: start: 20051216, end: 20051227
  2. LORAZEPAM [Concomitant]
  3. TRAZODONE [Concomitant]
  4. TRAMADOL HCL [Concomitant]
  5. PROPRANOLOL [Concomitant]

REACTIONS (3)
  - INFLUENZA LIKE ILLNESS [None]
  - MUSCLE RIGIDITY [None]
  - RHINITIS [None]
